FAERS Safety Report 7085823-5 (Version None)
Quarter: 2010Q4

REPORT INFORMATION
  Report Type: 
  Country: None (occurrence: None)
  Receive Date: 20101105
  Receipt Date: 20101029
  Transmission Date: 20110411
  Serious: Yes (Other)
  Sender: FDA-Public Use
  Company Number: US-SANOFI-AVENTIS-2010SA066354

PATIENT
  Age: 68 Year
  Sex: Female

DRUGS (4)
  1. APIDRA [Suspect]
     Dosage: PER SLIDING SCALE
     Route: 058
  2. SOLOSTAR [Suspect]
  3. THYROID THERAPY [Concomitant]
  4. ALL OTHER THERAPEUTIC PRODUCTS [Concomitant]

REACTIONS (3)
  - BLINDNESS [None]
  - CEREBROVASCULAR ACCIDENT [None]
  - DEVICE MALFUNCTION [None]
